FAERS Safety Report 4783526-0 (Version None)
Quarter: 2005Q3

REPORT INFORMATION
  Report Type: 
  Country: None (occurrence: None)
  Receive Date: 20050929
  Receipt Date: 20050919
  Transmission Date: 20060218
  Serious: Yes (Hospitalization)
  Sender: FDA-Public Use
  Company Number: FR-BRISTOL-MYERS SQUIBB COMPANY-13114434

PATIENT
  Age: 67 Year
  Sex: Male

DRUGS (6)
  1. VINFLUNINE [Suspect]
     Indication: NON-SMALL CELL LUNG CANCER
     Dosage: ACTUAL DOSE: 554 MG.
     Route: 042
     Dates: start: 20020502, end: 20020502
  2. CISPLATIN [Suspect]
     Indication: NON-SMALL CELL LUNG CANCER
     Route: 042
     Dates: start: 20020502, end: 20020502
  3. DIMETHICONE [Concomitant]
  4. DIPYRONE TAB [Concomitant]
     Dosage: 5 ML/2.5 GRAMS.
  5. METOCLOPRAMIDE [Concomitant]
     Route: 042
  6. SODIUM CHLORIDE [Concomitant]
     Dosage: 0.9%.
     Route: 042

REACTIONS (3)
  - ABDOMINAL PAIN [None]
  - CONSTIPATION [None]
  - FATIGUE [None]
